FAERS Safety Report 24212153 (Version 2)
Quarter: 2024Q3

REPORT INFORMATION
  Report Type: Spontaneous
  Country: GB (occurrence: GB)
  Receive Date: 20240815
  Receipt Date: 20240828
  Transmission Date: 20241016
  Serious: Yes (Other)
  Sender: CELLTRION
  Company Number: GB-CELLTRION INC.-2024GB019164

PATIENT

DRUGS (1)
  1. YUFLYMA [Suspect]
     Active Substance: ADALIMUMAB-AATY
     Indication: Crohn^s disease
     Dosage: TAKING THE MEDICATION EVERY WEEK ON A SUNDAY
     Route: 058
     Dates: start: 202404

REACTIONS (2)
  - Crohn^s disease [Unknown]
  - Product prescribing issue [Unknown]
